FAERS Safety Report 15474148 (Version 1)
Quarter: 2018Q4

REPORT INFORMATION
  Report Type: Spontaneous
  Country: US (occurrence: US)
  Receive Date: 20181008
  Receipt Date: 20181008
  Transmission Date: 20190205
  Serious: Yes (Hospitalization)
  Sender: FDA-Public Use
  Company Number: US-JNJFOC-20181007101

PATIENT
  Age: 52 Year
  Sex: Male

DRUGS (1)
  1. INVOKANA [Suspect]
     Active Substance: CANAGLIFLOZIN
     Indication: TYPE 2 DIABETES MELLITUS
     Route: 048
     Dates: start: 20160505

REACTIONS (7)
  - Cellulitis [Recovering/Resolving]
  - Toe amputation [Recovering/Resolving]
  - Osteomyelitis [Recovering/Resolving]
  - Gangrene [Recovering/Resolving]
  - Extremity necrosis [Recovering/Resolving]
  - Acute kidney injury [Recovering/Resolving]
  - Diabetic foot [Recovering/Resolving]

NARRATIVE: CASE EVENT DATE: 201710
